FAERS Safety Report 10222270 (Version 1)
Quarter: 2014Q2

REPORT INFORMATION
  Report Type: Report from Study
  Country: US (occurrence: US)
  Receive Date: 20140606
  Receipt Date: 20140606
  Transmission Date: 20141212
  Serious: Yes (Hospitalization, Other)
  Sender: FDA-Public Use
  Company Number: US-PURDUE-USA-2014-0114635

PATIENT
  Age: 53 Year
  Sex: Male

DRUGS (2)
  1. OXY CR TAB [Suspect]
     Indication: SCIATICA
     Dosage: 160 MG, BID
     Route: 048
  2. OXY CR TAB [Suspect]
     Indication: INTERVERTEBRAL DISC DISPLACEMENT

REACTIONS (4)
  - Fall [Unknown]
  - Cervical vertebral fracture [Unknown]
  - Diplegia [Unknown]
  - Musculoskeletal discomfort [Unknown]
